FAERS Safety Report 14234917 (Version 1)
Quarter: 2017Q4

REPORT INFORMATION
  Report Type: Spontaneous
  Country: US (occurrence: None)
  Receive Date: 20171128
  Receipt Date: 20171128
  Transmission Date: 20180321
  Serious: Yes (Hospitalization)
  Sender: FDA-Public Use
  Company Number: None

PATIENT
  Sex: Male

DRUGS (1)
  1. CAPECITABINE 500 MG WEST-WARD [Suspect]
     Active Substance: CAPECITABINE
     Indication: PRODUCT USED FOR UNKNOWN INDICATION
     Dosage: 2000 MG BID 14 DAYS ON AND 7 DAYS OFF PO
     Route: 048
     Dates: start: 20171102

REACTIONS (7)
  - Constipation [None]
  - Feeling abnormal [None]
  - Therapy change [None]
  - Insomnia [None]
  - Drug ineffective [None]
  - Dry skin [None]
  - Pain [None]
